FAERS Safety Report 13652582 (Version 1)
Quarter: 2017Q2

REPORT INFORMATION
  Report Type: Spontaneous
  Country: GB (occurrence: GB)
  Receive Date: 20170614
  Receipt Date: 20170614
  Transmission Date: 20170830
  Serious: Yes (Life-Threatening, Hospitalization, Other)
  Sender: FDA-Public Use
  Company Number: GB-BAYER-2017-107014

PATIENT
  Age: 91 Year
  Sex: Female
  Weight: 68 kg

DRUGS (18)
  1. XARELTO [Suspect]
     Active Substance: RIVAROXABAN
     Dosage: 15 MG, QD
     Dates: start: 20161230, end: 20170331
  2. DIGOXIN. [Concomitant]
     Active Substance: DIGOXIN
     Dosage: UNK UNK, QD
     Dates: start: 20170223
  3. FOLIC ACID. [Concomitant]
     Active Substance: FOLIC ACID
     Dosage: 5 MG, QD
     Dates: start: 20170223
  4. HYDROXOCOBALAMIN [Concomitant]
     Active Substance: HYDROXOCOBALAMIN
     Dosage: 1 MG, TID
     Dates: start: 20170223
  5. BISOPROLOL [Concomitant]
     Active Substance: BISOPROLOL
     Dosage: 1 DF, QD
  6. PARACETAMOL [Concomitant]
     Active Substance: ACETAMINOPHEN
     Indication: PAIN
     Dosage: 1000 MG, UNK
     Dates: start: 20170223, end: 20170427
  7. METFORMIN [Concomitant]
     Active Substance: METFORMIN HYDROCHLORIDE
     Dosage: 500 MG, BID
     Dates: start: 20170509
  8. ASPIRIN. [Suspect]
     Active Substance: ASPIRIN
     Dosage: UNK
     Dates: start: 20170321, end: 20170406
  9. FERROUS FUMARATE [Concomitant]
     Active Substance: FERROUS FUMARATE
     Dosage: 305 MG, TID
     Dates: start: 20170223, end: 20170227
  10. VISCOTEARS [Concomitant]
     Active Substance: CARBOMER
     Dosage: UNK
     Dates: start: 20170223
  11. BISOPROLOL [Concomitant]
     Active Substance: BISOPROLOL
     Dosage: 75 MG, QD
     Dates: start: 20170223
  12. PREGABALIN. [Concomitant]
     Active Substance: PREGABALIN
     Dosage: 75 MG, BID
     Dates: start: 20170223
  13. HUMULIN L [Concomitant]
     Active Substance: INSULIN HUMAN
     Dosage: UNK
     Dates: start: 20170224
  14. FUROSEMIDE. [Concomitant]
     Active Substance: FUROSEMIDE
     Dosage: 40 MG, QD
     Dates: start: 20170223
  15. LAXIDO [Concomitant]
     Active Substance: POLYETHYLENE GLYCOL 3350\POTASSIUM CHLORIDE\SODIUM BICARBONATE\SODIUM CHLORIDE
     Dosage: 1 DF, BID
     Dates: start: 20170223, end: 20170522
  16. LINAGLIPTIN [Concomitant]
     Active Substance: LINAGLIPTIN
     Dosage: 1 DF, QD
     Dates: start: 20170508
  17. SIMVASTATIN. [Concomitant]
     Active Substance: SIMVASTATIN
     Dosage: 40 MG, QD
     Dates: start: 20170223
  18. SITAGLIPTIN [Concomitant]
     Active Substance: SITAGLIPTIN
     Dosage: 25 MG, QD
     Dates: start: 20170223, end: 20170508

REACTIONS (4)
  - Subarachnoid haemorrhage [Recovered/Resolved]
  - Subdural haematoma [Unknown]
  - Fall [Unknown]
  - Cerebrovascular disorder [Unknown]

NARRATIVE: CASE EVENT DATE: 20170406
